FAERS Safety Report 8988300 (Version 4)
Quarter: 2013Q2

REPORT INFORMATION
  Report Type: Spontaneous
  Country: IT (occurrence: IT)
  Receive Date: 20121227
  Receipt Date: 20130405
  Transmission Date: 20140414
  Serious: No
  Sender: FDA-Public Use
  Company Number: IT-009507513-1212ITA010233

PATIENT
  Age: 37 Year
  Sex: Female

DRUGS (3)
  1. SYCREST [Suspect]
     Indication: BIPOLAR DISORDER
     Dosage: 5 MG, QD
     Route: 048
     Dates: start: 20121001, end: 20121102
  2. SYCREST [Suspect]
     Indication: MANIA
  3. DEPAKINE CHRONO [Concomitant]
     Indication: BIPOLAR DISORDER
     Dosage: DAILY DOSE: 1000MG
     Route: 048
     Dates: start: 201209

REACTIONS (4)
  - Swelling [Recovering/Resolving]
  - Glossodynia [Recovering/Resolving]
  - Dysphagia [Recovering/Resolving]
  - Dysarthria [Recovering/Resolving]
